FAERS Safety Report 13276155 (Version 4)
Quarter: 2017Q2

REPORT INFORMATION
  Report Type: Spontaneous
  Country: US (occurrence: US)
  Receive Date: 20170228
  Receipt Date: 20170502
  Transmission Date: 20170830
  Serious: No
  Sender: FDA-Public Use
  Company Number: US-GLAXOSMITHKLINE-US2017026159

PATIENT
  Age: 65 Year
  Sex: Female

DRUGS (1)
  1. DICLOFENAC SODIUM GEL [Suspect]
     Active Substance: DICLOFENAC SODIUM
     Indication: COCCYDYNIA
     Dosage: UNK
     Route: 061

REACTIONS (9)
  - Urticaria [Recovered/Resolved]
  - Limb discomfort [Recovered/Resolved]
  - Blister [Recovered/Resolved]
  - Pruritus [Recovered/Resolved]
  - Drug administered at inappropriate site [Unknown]
  - Off label use [Unknown]
  - Skin burning sensation [Recovered/Resolved]
  - Emergency care examination [Unknown]
  - Nonspecific reaction [Unknown]
